FAERS Safety Report 5422206-5 (Version None)
Quarter: 2007Q3

REPORT INFORMATION
  Report Type: 
  Country: None (occurrence: None)
  Receive Date: 20070820
  Receipt Date: 20070820
  Transmission Date: 20080115
  Serious: Yes (Other)
  Sender: FDA-Public Use
  Company Number: None

PATIENT
  Sex: Female

DRUGS (6)
  1. REVLIMID [Suspect]
     Indication: MULTIPLE MYELOMA
     Dosage: 5 MG DAILY PO
     Route: 048
     Dates: start: 20070721, end: 20070803
  2. MEGESTROL ACETATE [Concomitant]
  3. OMEPRAZOLE [Concomitant]
  4. DIAZEPAM [Concomitant]
  5. LISINOPRIL AND HYDROCHLOROTHIAZIDE [Concomitant]
  6. SERTRALINE [Concomitant]

REACTIONS (4)
  - BLISTER [None]
  - PRURITUS [None]
  - RASH MACULO-PAPULAR [None]
  - STOMATITIS [None]
